FAERS Safety Report 24615617 (Version 5)
Quarter: 2025Q1

REPORT INFORMATION
  Report Type: Spontaneous
  Country: US (occurrence: US)
  Receive Date: 20241113
  Receipt Date: 20250222
  Transmission Date: 20250409
  Serious: No
  Sender: SANOFI AVENTIS
  Company Number: US-SA-2024SA326038

PATIENT
  Age: 91 Year
  Sex: Male

DRUGS (2)
  1. DUPIXENT [Suspect]
     Active Substance: DUPILUMAB
     Indication: Dermatitis atopic
     Dosage: 300 MG, QOW
     Route: 058
  2. PLAVIX [Concomitant]
     Active Substance: CLOPIDOGREL BISULFATE

REACTIONS (7)
  - Tremor [Unknown]
  - Contusion [Unknown]
  - Fall [Unknown]
  - Pruritus [Recovering/Resolving]
  - Therapeutic response decreased [Unknown]
  - Product dose omission in error [Unknown]
  - Drug ineffective [Unknown]
